FAERS Safety Report 18758541 (Version 3)
Quarter: 2021Q2

REPORT INFORMATION
  Report Type: Spontaneous
  Country: US (occurrence: US)
  Receive Date: 20210119
  Receipt Date: 20210423
  Transmission Date: 20210717
  Serious: No
  Sender: FDA-Public Use
  Company Number: US-MYLANLABS-2021M1003117

PATIENT
  Sex: Female
  Weight: 127 kg

DRUGS (2)
  1. EPINEPHRINE INJECTION USP AUTO?INJECTOR [Suspect]
     Active Substance: EPINEPHRINE
     Dosage: IN CASE OF ANAPHYLAXIS REACTION
     Route: 030
  2. EPINEPHRINE INJECTION USP AUTO?INJECTOR [Suspect]
     Active Substance: EPINEPHRINE
     Indication: ALLERGY TO STING
     Dosage: AS NEEDED FOR ANAPHYLAXIS REACTION
     Route: 030

REACTIONS (2)
  - Product quality issue [None]
  - Liquid product physical issue [None]
